FAERS Safety Report 7518271-1 (Version None)
Quarter: 2011Q2

REPORT INFORMATION
  Report Type: 
  Country: None (occurrence: None)
  Receive Date: 20110601
  Receipt Date: 20110601
  Transmission Date: 20111010
  Serious: No
  Sender: FDA-Public Use
  Company Number: None

PATIENT
  Sex: Male
  Weight: 108.8633 kg

DRUGS (1)
  1. WELCHOL [Suspect]
     Indication: BLOOD CHOLESTEROL INCREASED
     Dosage: 3 TABLETS TWICE A  DAY
     Dates: start: 20110401

REACTIONS (4)
  - MYALGIA [None]
  - FATIGUE [None]
  - MUSCLE SPASMS [None]
  - ASTHENIA [None]
